FAERS Safety Report 25937225 (Version 2)
Quarter: 2025Q4

REPORT INFORMATION
  Report Type: Spontaneous
  Country: US (occurrence: US)
  Receive Date: 20251017
  Receipt Date: 20251020
  Transmission Date: 20260118
  Serious: No
  Sender: PURDUE
  Company Number: US-NAPPMUNDI-GBR-2025-0129564

PATIENT

DRUGS (1)
  1. BUPRENORPHINE [Suspect]
     Active Substance: BUPRENORPHINE
     Indication: Drug use disorder
     Dosage: UNK
     Route: 065

REACTIONS (1)
  - Off label use [Unknown]
